FAERS Safety Report 7794684-8 (Version None)
Quarter: 2011Q4

REPORT INFORMATION
  Report Type: 
  Country: None (occurrence: None)
  Receive Date: 20111003
  Receipt Date: 20111003
  Transmission Date: 20120403
  Serious: Yes (Hospitalization)
  Sender: FDA-Public Use
  Company Number: None

PATIENT
  Age: 80 Year
  Sex: Female
  Weight: 99.5 kg

DRUGS (1)
  1. OXYCODONE HCL [Suspect]
     Dates: start: 20110721

REACTIONS (1)
  - MENTAL STATUS CHANGES [None]
